FAERS Safety Report 24843859 (Version 3)
Quarter: 2025Q4

REPORT INFORMATION
  Report Type: Report from Study
  Country: US (occurrence: None)
  Receive Date: 20250115
  Receipt Date: 20251202
  Transmission Date: 20260118
  Serious: Yes (Other)
  Sender: UCB
  Company Number: US-UCBSA-2025001960

PATIENT
  Age: 18 Year
  Weight: 68.95 kg

DRUGS (1)
  1. FENFLURAMINE [Suspect]
     Active Substance: FENFLURAMINE
     Indication: Seizure
     Dosage: 5.9 MILLIGRAM (5.9 MG PER DAY)

REACTIONS (1)
  - Tricuspid valve incompetence [Not Recovered/Not Resolved]
